FAERS Safety Report 8579293-5 (Version None)
Quarter: 2012Q3

REPORT INFORMATION
  Report Type: 
  Country: None (occurrence: None)
  Receive Date: 20120808
  Receipt Date: 20120802
  Transmission Date: 20120928
  Serious: Yes (Other)
  Sender: FDA-Public Use
  Company Number: US-ROCHE-1097341

PATIENT
  Age: 41 Year
  Sex: Male
  Weight: 52.21 kg

DRUGS (4)
  1. FLUOROURACIL [Concomitant]
     Indication: COLORECTAL CANCER
     Route: 042
     Dates: start: 20120301
  2. NEULASTA [Concomitant]
  3. OXALIPLATIN [Concomitant]
     Indication: COLORECTAL CANCER
     Route: 042
     Dates: start: 20120301
  4. AVASTIN [Suspect]
     Indication: COLORECTAL CANCER
     Route: 042
     Dates: start: 20120301

REACTIONS (2)
  - PNEUMOTHORAX [None]
  - ASPIRATION PLEURAL CAVITY [None]
